FAERS Safety Report 10069880 (Version 1)
Quarter: 2014Q2

REPORT INFORMATION
  Report Type: Spontaneous
  Country: DK (occurrence: None)
  Receive Date: 20140408
  Receipt Date: 20140408
  Transmission Date: 20141212
  Serious: Yes (Hospitalization, Congenital Anomaly)
  Sender: FDA-Public Use
  Company Number: FK201401202

PATIENT
  Age: 29 Year
  Sex: Male

DRUGS (6)
  1. CYTARABINE [Suspect]
     Indication: MATERNAL EXPOSURE TIMING UNSPECIFIED
  2. METHOTREXATE [Suspect]
     Indication: MATERNAL EXPOSURE TIMING UNSPECIFIED
  3. MERCAPTOPURINE [Suspect]
     Indication: MATERNAL EXPOSURE TIMING UNSPECIFIED
  4. VINCRISTINE [Suspect]
     Indication: MATERNAL EXPOSURE TIMING UNSPECIFIED
  5. PREDNISOLONE [Suspect]
     Indication: MATERNAL EXPOSURE TIMING UNSPECIFIED
  6. ASPARAGINASE [Suspect]
     Indication: MATERNAL EXPOSURE TIMING UNSPECIFIED

REACTIONS (3)
  - Acute abdomen [None]
  - Abdominal compartment syndrome [None]
  - Respiratory failure [None]
